FAERS Safety Report 4335329-9 (Version None)
Quarter: 2004Q2

REPORT INFORMATION
  Report Type: 
  Country: None (occurrence: None)
  Receive Date: 20040408
  Receipt Date: 20040408
  Transmission Date: 20050107
  Serious: Yes (Life-Threatening, Disabling)
  Sender: FDA-Public Use
  Company Number: None

PATIENT
  Age: 53 Year
  Sex: Female
  Weight: 75 kg

DRUGS (15)
  1. HEPARIN [Suspect]
     Indication: ANTICOAGULANT THERAPY
     Dosage: CONT INF, IV
     Route: 042
     Dates: start: 20040109, end: 20040110
  2. HEPARIN [Suspect]
     Indication: ANTICOAGULANT THERAPY
     Dosage: CONT INF, IV
     Route: 042
     Dates: start: 20040102
  3. HEPARIN [Suspect]
     Indication: ANTICOAGULANT THERAPY
     Dosage: CONT INF, IV
     Route: 042
     Dates: start: 20040103
  4. LANSOPRAZOLE [Concomitant]
  5. ETOMIDATE [Concomitant]
  6. METRONIDAZOLE [Concomitant]
  7. VANCOMYIN [Concomitant]
  8. NYSTATIN [Concomitant]
  9. CEFEPIME [Concomitant]
  10. BACITRACIN ZINC-POLYMYXIN B SULFATE [Concomitant]
  11. MORPHINE SULFATE [Concomitant]
  12. MEPERIDINE HCL [Concomitant]
  13. OXYCODONE AND ACETAMINOPHEN [Concomitant]
  14. LORAZEPAM [Concomitant]
  15. PHENYLEPHRINE [Concomitant]

REACTIONS (8)
  - BLISTER [None]
  - CYANOSIS [None]
  - EMBOLISM [None]
  - FEELING COLD [None]
  - PERIPHERAL ISCHAEMIA [None]
  - PLATELET COUNT DECREASED [None]
  - PULSE ABSENT [None]
  - SKIN DESQUAMATION [None]
